FAERS Safety Report 23624035 (Version 1)
Quarter: 2024Q1

REPORT INFORMATION
  Report Type: Spontaneous
  Country: FR (occurrence: FR)
  Receive Date: 20240312
  Receipt Date: 20240312
  Transmission Date: 20240409
  Serious: Yes (Life-Threatening, Other)
  Sender: FDA-Public Use
  Company Number: None

PATIENT
  Age: 31 Year
  Sex: Female
  Weight: 68 kg

DRUGS (6)
  1. DEXAMETHASONE [Suspect]
     Active Substance: DEXAMETHASONE
     Indication: Prophylaxis of nausea and vomiting
     Dosage: 8 MILLIGRAM 1 TOTAL
     Route: 042
     Dates: start: 20231110, end: 20231110
  2. EPHEDRINE [Suspect]
     Active Substance: EPHEDRINE
     Indication: Hypotension
     Dosage: 9 MILLIGRAM 1 TOTAL
     Route: 042
     Dates: start: 20231110, end: 20231110
  3. ALFENTANIL HYDROCHLORIDE [Suspect]
     Active Substance: ALFENTANIL HYDROCHLORIDE
     Indication: General anaesthesia
     Dosage: 1500 MICROGRAM 1 TOTAL
     Route: 042
     Dates: start: 20231110, end: 20231110
  4. PHLOROGLUCINOL\1,3,5-TRIMETHOXYBENZENE [Suspect]
     Active Substance: PHLOROGLUCINOL\1,3,5-TRIMETHOXYBENZENE
     Indication: Pain prophylaxis
     Dosage: 80 MILLIGRAM 1 TOTAL
     Route: 042
     Dates: start: 20231110, end: 20231110
  5. PROPOFOL LIPURO [Suspect]
     Active Substance: PROPOFOL
     Indication: General anaesthesia
     Dosage: 420 MILLIGRAM 1 TOTAL
     Route: 042
     Dates: start: 20231110, end: 20231110
  6. ACETAMINOPHEN [Suspect]
     Active Substance: ACETAMINOPHEN
     Indication: Pain prophylaxis
     Dosage: 1 GRAM 1 TOTAL
     Route: 042
     Dates: start: 20231110, end: 20231110

REACTIONS (2)
  - Anaphylactic reaction [Recovered/Resolved]
  - Sedation complication [Recovered/Resolved]

NARRATIVE: CASE EVENT DATE: 20231110
